FAERS Safety Report 7589874-3 (Version None)
Quarter: 2011Q3

REPORT INFORMATION
  Report Type: 
  Country: None (occurrence: None)
  Receive Date: 20110705
  Receipt Date: 20110621
  Transmission Date: 20111222
  Serious: Yes (Hospitalization, Other)
  Sender: FDA-Public Use
  Company Number: US-MERCK-1101USA01417

PATIENT
  Age: 68 Year
  Sex: Female

DRUGS (4)
  1. FOSAMAX [Suspect]
     Indication: OSTEOPENIA
     Route: 048
     Dates: start: 19980301, end: 19990304
  2. ESTRACE [Concomitant]
     Indication: HORMONE THERAPY
     Route: 065
     Dates: start: 19610101
  3. METHOTREXATE [Suspect]
     Route: 065
  4. RECLAST [Suspect]
     Route: 051
     Dates: start: 20081008

REACTIONS (35)
  - ARTHROPATHY [None]
  - SKIN CANCER [None]
  - MUCOSAL ULCERATION [None]
  - LOOSE TOOTH [None]
  - ARTHRITIS [None]
  - RENAL IMPAIRMENT [None]
  - PERIODONTAL DISEASE [None]
  - TOOTH DISORDER [None]
  - HYPOKALAEMIA [None]
  - JOINT CREPITATION [None]
  - BLOOD GLUCOSE INCREASED [None]
  - DENTAL PLAQUE [None]
  - FLUID OVERLOAD [None]
  - INSOMNIA [None]
  - SPINAL COLUMN INJURY [None]
  - BURSITIS [None]
  - IRON DEFICIENCY ANAEMIA [None]
  - MASTICATION DISORDER [None]
  - PAIN [None]
  - SENSITIVITY OF TEETH [None]
  - GINGIVITIS [None]
  - ANAEMIA MACROCYTIC [None]
  - ARTHRALGIA [None]
  - SYNOVITIS [None]
  - DYSPHAGIA [None]
  - HYPERTENSION [None]
  - BLOOD CHOLESTEROL INCREASED [None]
  - JOINT SWELLING [None]
  - OESOPHAGITIS [None]
  - OSTEONECROSIS OF JAW [None]
  - SPINAL DISORDER [None]
  - INTERVERTEBRAL DISC PROTRUSION [None]
  - RAYNAUD'S PHENOMENON [None]
  - ORAL INFECTION [None]
  - VISUAL ACUITY REDUCED [None]
